FAERS Safety Report 6656373-2 (Version None)
Quarter: 2010Q1

REPORT INFORMATION
  Report Type: 
  Country: None (occurrence: None)
  Receive Date: 20100324
  Receipt Date: 20100308
  Transmission Date: 20100710
  Serious: Yes (Hospitalization)
  Sender: FDA-Public Use
  Company Number: JPI-P-008800

PATIENT
  Age: 54 Year
  Sex: Female

DRUGS (3)
  1. XYREM [Suspect]
     Indication: CATAPLEXY
     Dosage: 6 GM, (3 GM, 2 IN 1 D), ORAL
     Route: 048
     Dates: start: 20070810, end: 20100209
  2. XYREM [Suspect]
     Indication: CATAPLEXY
     Dosage: 6 GM, (3 GM, 2 IN 1 D), ORAL
     Route: 048
     Dates: start: 20100211
  3. DARIFENACIN [Concomitant]

REACTIONS (4)
  - BLISTER [None]
  - INFECTED CYST [None]
  - PILONIDAL CYST [None]
  - RASH [None]
